FAERS Safety Report 8350466-X (Version None)
Quarter: 2012Q2

REPORT INFORMATION
  Report Type: 
  Country: None (occurrence: None)
  Receive Date: 20120510
  Receipt Date: 20120426
  Transmission Date: 20120825
  Serious: Yes (Death, Other)
  Sender: FDA-Public Use
  Company Number: US-BAXTER-2012BAX000323

PATIENT
  Sex: Male

DRUGS (4)
  1. DIANEAL [Suspect]
     Route: 033
     Dates: end: 20120315
  2. DIANEAL LOW CALCIUM W/ DEXTROSE 1.5% [Suspect]
     Indication: PERITONEAL DIALYSIS
     Route: 033
     Dates: end: 20120315
  3. DIANEAL [Suspect]
     Route: 033
     Dates: end: 20120315
  4. DIANEAL [Suspect]
     Indication: PERITONEAL DIALYSIS
     Route: 033
     Dates: end: 20120315

REACTIONS (4)
  - POOR PERIPHERAL CIRCULATION [None]
  - GANGRENE [None]
  - CARDIAC FAILURE [None]
  - SEPSIS [None]
